FAERS Safety Report 13094363 (Version 3)
Quarter: 2019Q2

REPORT INFORMATION
  Report Type: Spontaneous
  Country: US (occurrence: US)
  Receive Date: 20170106
  Receipt Date: 20190529
  Transmission Date: 20190711
  Serious: Yes (Other)
  Sender: FDA-Public Use
  Company Number: US-PFIZER INC-2017004105

PATIENT
  Age: 63 Year
  Sex: Male
  Weight: 79 kg

DRUGS (9)
  1. VITAMIN C [Concomitant]
     Active Substance: ASCORBIC ACID
     Dosage: UNK
  2. FISH OIL [Concomitant]
     Active Substance: FISH OIL
     Dosage: UNK
  3. CALCIUM [Concomitant]
     Active Substance: CALCIUM
     Dosage: UNK
  4. PREDNISONE. [Concomitant]
     Active Substance: PREDNISONE
     Dosage: UNK
  5. FOLIC ACID. [Concomitant]
     Active Substance: FOLIC ACID
     Dosage: UNK
  6. ASPIRIN. [Concomitant]
     Active Substance: ASPIRIN
     Dosage: UNK
  7. VITAMIN D [Concomitant]
     Active Substance: VITAMIN D NOS
     Dosage: UNK
  8. XELJANZ XR [Suspect]
     Active Substance: TOFACITINIB CITRATE
     Indication: RHEUMATOID ARTHRITIS
     Dosage: 11 MG, DAILY
     Route: 048
     Dates: start: 20161220
  9. METHOTREXATE. [Concomitant]
     Active Substance: METHOTREXATE
     Dosage: UNK

REACTIONS (2)
  - Post procedural infection [Unknown]
  - Drug ineffective [Unknown]
